FAERS Safety Report 15154928 (Version 1)
Quarter: 2018Q3

REPORT INFORMATION
  Report Type: Spontaneous
  Country: US (occurrence: US)
  Receive Date: 20180717
  Receipt Date: 20180717
  Transmission Date: 20181010
  Serious: No
  Sender: FDA-Public Use
  Company Number: US-TARO-2017TAR00764

PATIENT
  Sex: Female
  Weight: 61.22 kg

DRUGS (2)
  1. DESONIDE. [Suspect]
     Active Substance: DESONIDE
  2. UNSPECIFIED MEDICATIONS [Concomitant]
     Active Substance: UNSPECIFIED INGREDIENT

REACTIONS (3)
  - Dry skin [Recovering/Resolving]
  - Skin irritation [Recovering/Resolving]
  - Hypersensitivity [Recovering/Resolving]
